FAERS Safety Report 12951750 (Version 1)
Quarter: 2016Q4

REPORT INFORMATION
  Report Type: Spontaneous
  Country: NL (occurrence: NL)
  Receive Date: 20161117
  Receipt Date: 20161117
  Transmission Date: 20170207
  Serious: Yes (Other)
  Sender: FDA-Public Use
  Company Number: NL-TEVA-711308ACC

PATIENT
  Age: 69 Year
  Sex: Female
  Weight: 70 kg

DRUGS (3)
  1. AZOPT [Concomitant]
     Active Substance: BRINZOLAMIDE
     Dosage: 2 GTT DAILY; AZOPT (BRINZOLAMIDE, NON TEVA DRUG) 2 TIMES PER DAY
     Route: 047
     Dates: start: 2004
  2. DEXAMETHASON TEVA OOGDRUPPELS 1MG/ML FLACON 5ML [Suspect]
     Active Substance: DEXAMETHASONE
     Indication: CATARACT OPERATION
     Dosage: 3 GTT DAILY; 3 TIMES PER DAY 1 PIECE(S)
     Route: 047
     Dates: start: 20160828
  3. GANFORT OOGDRUPPELS FLACON 3ML [Concomitant]
     Active Substance: BIMATOPROST\TIMOLOL MALEATE
     Dosage: 1 GTT DAILY; 1 TIME PER DAY 1 PIECE(S)
     Route: 047
     Dates: start: 2004

REACTIONS (2)
  - Glaucoma [Recovering/Resolving]
  - Gastric disorder [Recovering/Resolving]

NARRATIVE: CASE EVENT DATE: 20160829
